FAERS Safety Report 4586428-8 (Version None)
Quarter: 2005Q1

REPORT INFORMATION
  Report Type: 
  Country: None (occurrence: None)
  Receive Date: 20050218
  Receipt Date: 20050208
  Transmission Date: 20050727
  Serious: Yes (Other)
  Sender: FDA-Public Use
  Company Number: US-JNJFOC-20050202721

PATIENT
  Sex: Female
  Weight: 58.97 kg

DRUGS (13)
  1. REMICADE [Suspect]
     Indication: RHEUMATOID ARTHRITIS
     Route: 042
  2. PREMARIN [Concomitant]
  3. PROVERA [Concomitant]
  4. METHOTREXATE [Concomitant]
  5. METHOTREXATE [Concomitant]
     Indication: RHEUMATOID ARTHRITIS
  6. SEIZURE MEDICATION [Concomitant]
  7. MIRALAX [Concomitant]
  8. SYNTHROID [Concomitant]
     Indication: THYROID DISORDER
  9. PREDNISONE [Concomitant]
     Indication: RHEUMATOID ARTHRITIS
  10. PLENDIL [Concomitant]
  11. ZIAC [Concomitant]
  12. ZIAC [Concomitant]
  13. FOLIC ACID [Concomitant]
     Indication: RHEUMATOID ARTHRITIS

REACTIONS (2)
  - CONSTIPATION [None]
  - SJOGREN'S SYNDROME [None]
